FAERS Safety Report 12358470 (Version 2)
Quarter: 2016Q2

REPORT INFORMATION
  Report Type: Spontaneous
  Country: US (occurrence: US)
  Receive Date: 20160512
  Receipt Date: 20160606
  Transmission Date: 20160815
  Serious: No
  Sender: FDA-Public Use
  Company Number: US-PFIZER INC-2016233156

PATIENT
  Age: 54 Year
  Sex: Female
  Weight: 88.44 kg

DRUGS (2)
  1. NICOTROL [Suspect]
     Active Substance: NICOTINE
     Indication: SMOKING CESSATION THERAPY
     Dosage: 10 MG, UNK
  2. NICOTROL [Suspect]
     Active Substance: NICOTINE
     Dosage: 1 PUFF 16 TIMES A DAY

REACTIONS (3)
  - Malaise [Unknown]
  - Drug ineffective [Unknown]
  - Intentional product use issue [Unknown]
